FAERS Safety Report 6141887-4 (Version None)
Quarter: 2009Q1

REPORT INFORMATION
  Report Type: 
  Country: None (occurrence: None)
  Receive Date: 20090331
  Receipt Date: 20090331
  Transmission Date: 20090719
  Serious: Yes (Other)
  Sender: FDA-Public Use
  Company Number: None

PATIENT
  Age: 53 Year
  Sex: Male
  Weight: 69.4003 kg

DRUGS (1)
  1. COZAAR [Suspect]
     Indication: AORTIC DILATATION
     Dosage: 50 MG ONCE PER DAY PO
     Route: 048
     Dates: start: 20090301, end: 20090306

REACTIONS (2)
  - COLITIS [None]
  - CONDITION AGGRAVATED [None]
